FAERS Safety Report 16381044 (Version 2)
Quarter: 2019Q2

REPORT INFORMATION
  Report Type: Spontaneous
  Country: JP (occurrence: JP)
  Receive Date: 20190602
  Receipt Date: 20190617
  Transmission Date: 20190711
  Serious: Yes (Hospitalization)
  Sender: FDA-Public Use
  Company Number: PHJP2019JP005929

PATIENT
  Age: 81 Year
  Sex: Male
  Weight: 37 kg

DRUGS (1)
  1. NEORAL [Suspect]
     Active Substance: CYCLOSPORINE
     Indication: PEMPHIGOID
     Dosage: 75 MG, QD (BEFORE BREAKFAST)
     Route: 048

REACTIONS (3)
  - Product use in unapproved indication [Unknown]
  - Pneumonia aspiration [Unknown]
  - Dysphagia [Unknown]
